FAERS Safety Report 25368850 (Version 2)
Quarter: 2025Q3

REPORT INFORMATION
  Report Type: Spontaneous
  Country: JP (occurrence: JP)
  Receive Date: 20250528
  Receipt Date: 20250709
  Transmission Date: 20251020
  Serious: Yes (Other)
  Sender: PFIZER
  Company Number: JP-PFIZER INC-PV202500019932

PATIENT
  Age: 57 Year
  Sex: Female
  Weight: 50 kg

DRUGS (4)
  1. LITFULO [Suspect]
     Active Substance: RITLECITINIB TOSYLATE
     Indication: Alopecia areata
     Dosage: 50 MG, 1X/DAY EVERY DAY
     Route: 048
     Dates: start: 20241209, end: 20250201
  2. LITFULO [Suspect]
     Active Substance: RITLECITINIB TOSYLATE
     Route: 048
  3. DIFLUPREDNATE [Suspect]
     Active Substance: DIFLUPREDNATE
     Indication: Dermatitis atopic
     Route: 061
  4. DEXAMETHASONE VALERATE [Suspect]
     Active Substance: DEXAMETHASONE VALERATE
     Indication: Dermatitis atopic
     Route: 061

REACTIONS (1)
  - Rosacea [Not Recovered/Not Resolved]

NARRATIVE: CASE EVENT DATE: 20250127
